FAERS Safety Report 16672275 (Version 1)
Quarter: 2019Q3

REPORT INFORMATION
  Report Type: Spontaneous
  Country: US (occurrence: US)
  Receive Date: 20190806
  Receipt Date: 20190806
  Transmission Date: 20191004
  Serious: No
  Sender: FDA-Public Use
  Company Number: US-SHIRE-US201925015

PATIENT

DRUGS (2)
  1. XIIDRA [Suspect]
     Active Substance: LIFITEGRAST
     Indication: DRY EYE
     Dosage: 1 GTT DROPS, 2X/DAY:BID
     Route: 047
     Dates: start: 20190720
  2. XIIDRA [Suspect]
     Active Substance: LIFITEGRAST
     Indication: EYE INFLAMMATION

REACTIONS (3)
  - Wrong technique in product usage process [Unknown]
  - Dacryostenosis acquired [Unknown]
  - Off label use [Unknown]
